FAERS Safety Report 7753546-2 (Version None)
Quarter: 2011Q3

REPORT INFORMATION
  Report Type: 
  Country: None (occurrence: None)
  Receive Date: 20110915
  Receipt Date: 20110913
  Transmission Date: 20111222
  Serious: No
  Sender: FDA-Public Use
  Company Number: US-PFIZER INC-2011216270

PATIENT
  Sex: Female
  Weight: 56.689 kg

DRUGS (1)
  1. ADVIL ALLERGY SINUS [Suspect]
     Indication: NASAL CONGESTION
     Dosage: 1 TABLET, DAILY
     Route: 048
     Dates: start: 20110909, end: 20110910

REACTIONS (1)
  - DRUG INEFFECTIVE [None]
